FAERS Safety Report 5923201-X (Version None)
Quarter: 2008Q4

REPORT INFORMATION
  Report Type: 
  Country: None (occurrence: None)
  Receive Date: 20081020
  Receipt Date: 20081014
  Transmission Date: 20090506
  Serious: Yes (Other)
  Sender: FDA-Public Use
  Company Number: US-BAYER-200834486NA

PATIENT
  Age: 42 Year
  Weight: 227 kg

DRUGS (5)
  1. AVELOX [Suspect]
     Indication: DRUG USE FOR UNKNOWN INDICATION
  2. SINGULAIR [Concomitant]
  3. PEPCID [Concomitant]
  4. BENADRYL [Concomitant]
  5. LASIX [Concomitant]

REACTIONS (5)
  - ANAPHYLACTIC REACTION [None]
  - HYPOTENSION [None]
  - PRURITUS [None]
  - RASH [None]
  - SWELLING [None]
